FAERS Safety Report 9421159 (Version 1)
Quarter: 2013Q3

REPORT INFORMATION
  Report Type: Spontaneous
  Country: US (occurrence: US)
  Receive Date: 20130725
  Receipt Date: 20130725
  Transmission Date: 20140515
  Serious: Yes (Other)
  Sender: FDA-Public Use
  Company Number: CHPA2013US011640

PATIENT
  Age: 78 Year
  Sex: Female

DRUGS (2)
  1. BUCKLEY^S COUGH MIXTURE [Suspect]
     Indication: PNEUMONIA
     Dosage: UNK, UNK
     Route: 048
     Dates: start: 2003
  2. BENICAR [Concomitant]
     Indication: BLOOD PRESSURE INCREASED
     Dosage: 20 MG, QD
     Dates: start: 2012

REACTIONS (5)
  - Pneumonia [Unknown]
  - Drug hypersensitivity [Unknown]
  - Off label use [Unknown]
  - Expired drug administered [Unknown]
  - Therapeutic response unexpected [Unknown]
